FAERS Safety Report 12625443 (Version 3)
Quarter: 2016Q4

REPORT INFORMATION
  Report Type: Spontaneous
  Country: US (occurrence: US)
  Receive Date: 20160805
  Receipt Date: 20161007
  Transmission Date: 20170207
  Serious: Yes (Other)
  Sender: FDA-Public Use
  Company Number: US-PFIZER INC-2016374561

PATIENT
  Age: 87 Year
  Sex: Female

DRUGS (10)
  1. FLUTICASONE [Concomitant]
     Active Substance: FLUTICASONE\FLUTICASONE PROPIONATE
     Indication: HYPERSENSITIVITY
     Dosage: 50MCG NASAL SPRAY AS NEEDED
     Route: 045
  2. AVINZA [Concomitant]
     Active Substance: MORPHINE SULFATE
     Indication: PAIN
     Dosage: 30 MG, AS NEEDED
  3. MINERALS [Concomitant]
     Active Substance: MINERALS
     Dosage: UNK
  4. VITAMINS [Concomitant]
     Active Substance: VITAMINS
     Dosage: UNK
  5. SIMVASTATIN. [Concomitant]
     Active Substance: SIMVASTATIN
     Dosage: 20 MG, 1X/DAY
  6. CARDIZEM [Concomitant]
     Active Substance: DILTIAZEM HYDROCHLORIDE
     Indication: BLOOD PRESSURE ABNORMAL
     Dosage: 120 MG, 1X/DAY (120MG ONCE AT NIGHT)
  7. LYRICA [Suspect]
     Active Substance: PREGABALIN
     Indication: RADICULOPATHY
     Dosage: 50 MG, 1X/DAY (QHS)
     Route: 048
     Dates: start: 2012
  8. DIOVAN [Concomitant]
     Active Substance: VALSARTAN
     Indication: HYPERTENSION
     Dosage: 320/25MG ONCE IN THE MORNING
  9. LYRICA [Suspect]
     Active Substance: PREGABALIN
     Indication: NEUROPATHY PERIPHERAL
     Dosage: 50 MG, 2X/DAY
  10. DIAZEPAM. [Concomitant]
     Active Substance: DIAZEPAM
     Dosage: 5 MG, AS NEEDED

REACTIONS (11)
  - Vertigo [Unknown]
  - Vision blurred [Not Recovered/Not Resolved]
  - Head injury [Recovered/Resolved]
  - Headache [Unknown]
  - Amnesia [Not Recovered/Not Resolved]
  - Limb injury [Recovered/Resolved]
  - Condition aggravated [Not Recovered/Not Resolved]
  - Ear injury [Recovered/Resolved]
  - Joint injury [Recovered/Resolved]
  - Fall [Recovered/Resolved]
  - Neoplasm malignant [Unknown]

NARRATIVE: CASE EVENT DATE: 20151217
